FAERS Safety Report 18074047 (Version 1)
Quarter: 2020Q3

REPORT INFORMATION
  Report Type: Spontaneous
  Country: US (occurrence: US)
  Receive Date: 20200727
  Receipt Date: 20200727
  Transmission Date: 20201103
  Serious: Yes (Hospitalization, Other)
  Sender: FDA-Public Use
  Company Number: US-MYLANLABS-2020M1067520

PATIENT
  Age: 20 Day
  Sex: Male

DRUGS (7)
  1. GENTAMICIN. [Suspect]
     Active Substance: GENTAMICIN
     Indication: SEPSIS
     Dosage: UNK
     Route: 065
  2. AMPICILLIN [Suspect]
     Active Substance: AMPICILLIN
     Indication: SEPSIS
     Dosage: UNK
     Route: 065
  3. VANCOMYCIN [Suspect]
     Active Substance: VANCOMYCIN
     Indication: SEPSIS
     Dosage: UNK
     Route: 065
  4. LEVOFLOXACIN. [Suspect]
     Active Substance: LEVOFLOXACIN
     Indication: STENOTROPHOMONAS INFECTION
     Dosage: 10 MILLIGRAM/KILOGRAM  LEVOFLOXACIN 10 MG/KG EVERY 24 HOURS
     Route: 042
  5. AMPHOTERICIN B. [Suspect]
     Active Substance: AMPHOTERICIN B
     Indication: FUNGAL SEPSIS
  6. LEVOFLOXACIN. [Suspect]
     Active Substance: LEVOFLOXACIN
     Indication: TRACHEITIS
  7. AMPHOTERICIN B. [Suspect]
     Active Substance: AMPHOTERICIN B
     Indication: FUNGAL SKIN INFECTION
     Dosage: UNK
     Route: 065

REACTIONS (2)
  - Hyperbilirubinaemia [Recovered/Resolved]
  - Drug ineffective [Unknown]
